FAERS Safety Report 4279206-0 (Version None)
Quarter: 2004Q1

REPORT INFORMATION
  Report Type: 
  Country: None (occurrence: None)
  Receive Date: 20040122
  Receipt Date: 20040109
  Transmission Date: 20041129
  Serious: Yes (Death, Hospitalization, Other)
  Sender: FDA-Public Use
  Company Number: A-US2004-04234

PATIENT
  Age: 14 Year
  Sex: Female
  Weight: 48 kg

DRUGS (7)
  1. TRACLEER [Suspect]
     Indication: PULMONARY HYPERTENSION
     Dosage: SEE IMAGE
     Route: 048
     Dates: start: 20031021, end: 20031101
  2. TRACLEER [Suspect]
     Indication: PULMONARY HYPERTENSION
     Dosage: SEE IMAGE
     Route: 048
     Dates: start: 20031101, end: 20031201
  3. SILDENAFIL [Concomitant]
  4. FLOLAN [Concomitant]
  5. MARVELON (DESOGESTREL, ETHINYLESTRADIOL) [Concomitant]
  6. IRON (IRON) [Concomitant]
  7. COUMADIN [Concomitant]

REACTIONS (5)
  - CARDIAC ARREST [None]
  - COUGH [None]
  - HAEMOPTYSIS [None]
  - LOWER RESPIRATORY TRACT INFECTION [None]
  - OXYGEN SATURATION DECREASED [None]
